FAERS Safety Report 17245759 (Version 14)
Quarter: 2025Q2

REPORT INFORMATION
  Report Type: Spontaneous
  Country: US (occurrence: US)
  Receive Date: 20200108
  Receipt Date: 20250526
  Transmission Date: 20250717
  Serious: No
  Sender: BIOGEN
  Company Number: US-BIOGEN-2020BI00825201

PATIENT
  Sex: Female

DRUGS (2)
  1. TYSABRI [Suspect]
     Active Substance: NATALIZUMAB
     Indication: Multiple sclerosis
     Route: 050
     Dates: start: 20170627, end: 20210518
  2. TYSABRI [Suspect]
     Active Substance: NATALIZUMAB
     Route: 050
     Dates: start: 20220217

REACTIONS (6)
  - Prescribed underdose [Recovered/Resolved]
  - Inappropriate schedule of product administration [Unknown]
  - Neuralgia [Not Recovered/Not Resolved]
  - Memory impairment [Unknown]
  - Muscle spasticity [Recovered/Resolved with Sequelae]
  - Multiple sclerosis [Unknown]

NARRATIVE: CASE EVENT DATE: 20200101
